FAERS Safety Report 20532742 (Version 1)
Quarter: 2022Q1

REPORT INFORMATION
  Report Type: Spontaneous
  Country: SK (occurrence: SK)
  Receive Date: 20220301
  Receipt Date: 20220301
  Transmission Date: 20220424
  Serious: Yes (Hospitalization)
  Sender: FDA-Public Use
  Company Number: SK-EDENBRIDGE PHARMACEUTICALS, LLC-SK-2022EDE000015

PATIENT
  Age: 50 Year
  Sex: Female
  Weight: 100 kg

DRUGS (2)
  1. IVERMECTIN [Suspect]
     Active Substance: IVERMECTIN
     Indication: COVID-19
     Dosage: 15 MG, Q8H
     Route: 048
  2. IVERMECTIN [Suspect]
     Active Substance: IVERMECTIN
     Indication: COVID-19
     Dosage: 20 MG
     Route: 042

REACTIONS (3)
  - Neurotoxicity [Recovering/Resolving]
  - Overdose [Recovering/Resolving]
  - Product use in unapproved indication [Unknown]
